FAERS Safety Report 7579153-2 (Version None)
Quarter: 2011Q2

REPORT INFORMATION
  Report Type: 
  Country: None (occurrence: None)
  Receive Date: 20110628
  Receipt Date: 20110622
  Transmission Date: 20111010
  Serious: Yes (Hospitalization)
  Sender: FDA-Public Use
  Company Number: FR-B.I. PHARMACEUTICALS,INC./RIDGEFIELD-2011-FF-00602FF

PATIENT
  Sex: Male

DRUGS (4)
  1. ATORVASTATIN CALCIUM [Concomitant]
     Indication: HYPERCHOLESTEROLAEMIA
     Dosage: 20 MG
     Route: 048
  2. MOBIC [Suspect]
     Indication: BACK PAIN
     Dosage: 15 MG PER MONTHS
     Route: 048
  3. TEMAZEPAM [Concomitant]
  4. MOBIC [Suspect]
     Dosage: 4/5 TABLETS PER WEEK
     Route: 048
     Dates: start: 20101201, end: 20110419

REACTIONS (1)
  - ISCHAEMIC STROKE [None]
